FAERS Safety Report 16549808 (Version 1)
Quarter: 2019Q3

REPORT INFORMATION
  Report Type: Spontaneous
  Country: US (occurrence: US)
  Receive Date: 20190710
  Receipt Date: 20190710
  Transmission Date: 20191004
  Serious: Yes (Life-Threatening, Hospitalization, Other)
  Sender: FDA-Public Use
  Company Number: US-CIPLA LTD.-2019US04808

PATIENT

DRUGS (2)
  1. ATORVASTATIN [Suspect]
     Active Substance: ATORVASTATIN
     Indication: PRODUCT USED FOR UNKNOWN INDICATION
     Dosage: UNK
     Route: 065
  2. SIMVASTATIN. [Suspect]
     Active Substance: SIMVASTATIN
     Indication: PRODUCT USED FOR UNKNOWN INDICATION
     Dosage: UNK
     Route: 065

REACTIONS (7)
  - Dysphonia [Unknown]
  - Dysphagia [Unknown]
  - Liver function test abnormal [Unknown]
  - Myopathy toxic [Unknown]
  - Weight decreased [Unknown]
  - Quadriparesis [Unknown]
  - Salivary hypersecretion [Unknown]
